FAERS Safety Report 10173754 (Version 1)
Quarter: 2014Q2

REPORT INFORMATION
  Report Type: Spontaneous
  Country: US (occurrence: None)
  Receive Date: 20140514
  Receipt Date: 20140514
  Transmission Date: 20141212
  Serious: Yes (Disabling)
  Sender: FDA-Public Use
  Company Number: None

PATIENT
  Age: 59 Year
  Sex: Female
  Weight: 108.86 kg

DRUGS (3)
  1. MELOXICAM [Suspect]
     Indication: ROTATOR CUFF SYNDROME
     Dosage: 1 TAB ONCE DAILY TAKEN BY MOUTH
     Route: 048
  2. MELOXICAM [Suspect]
     Indication: OSTEOARTHRITIS
     Dosage: 1 TAB ONCE DAILY TAKEN BY MOUTH
     Route: 048
  3. MELOXICAM [Suspect]
     Indication: TENDON RUPTURE
     Dosage: 1 TAB ONCE DAILY TAKEN BY MOUTH
     Route: 048

REACTIONS (5)
  - Muscle spasms [None]
  - Pain [None]
  - Middle insomnia [None]
  - Muscular weakness [None]
  - Myalgia [None]
